FAERS Safety Report 5388570-0 (Version None)
Quarter: 2007Q3

REPORT INFORMATION
  Report Type: 
  Country: None (occurrence: None)
  Receive Date: 20070712
  Receipt Date: 20070702
  Transmission Date: 20080115
  Serious: Yes (Death, Hospitalization)
  Sender: FDA-Public Use
  Company Number: GXKR2007NL05216

PATIENT
  Age: 85 Year
  Sex: Female
  Weight: 40 kg

DRUGS (6)
  1. METFORMIN HCL [Suspect]
     Indication: DIABETES MELLITUS
     Dosage: 500 MG, QD, UNKNOWN
  2. LEVODOPA-CARBIDOPA (CARBIDOPA, LEVODOPA) [Concomitant]
  3. AMANTADINE HCL [Concomitant]
  4. CARBASALATE CALCIUM (CARBASALATE CALCIUM) [Concomitant]
  5. PERINDOPRIL ERBUMINE [Concomitant]
  6. GLYBURIDE [Concomitant]

REACTIONS (11)
  - ABDOMINAL PAIN [None]
  - DELIRIUM [None]
  - DYSPNOEA [None]
  - GASTROINTESTINAL HYPOMOTILITY [None]
  - GLOMERULAR FILTRATION RATE DECREASED [None]
  - HAEMODIALYSIS [None]
  - LACTIC ACIDOSIS [None]
  - PNEUMONIA [None]
  - POST PROCEDURAL COMPLICATION [None]
  - SYNCOPE [None]
  - UROSEPSIS [None]
